FAERS Safety Report 9031298 (Version 2)
Quarter: 2013Q2

REPORT INFORMATION
  Report Type: Spontaneous
  Country: US (occurrence: US)
  Receive Date: 20130124
  Receipt Date: 20130521
  Transmission Date: 20140414
  Serious: Yes (Other)
  Sender: FDA-Public Use
  Company Number: US-B.I. PHARMACEUTICALS,INC./RIDGEFIELD-2013-BI-01090BP

PATIENT
  Age: 64 Year
  Sex: Male

DRUGS (9)
  1. TRADJENTA [Suspect]
     Indication: TYPE 2 DIABETES MELLITUS
     Dosage: 5 MG
     Route: 048
     Dates: start: 20121004, end: 201301
  2. ASPIRIN [Concomitant]
  3. LIPITOR [Concomitant]
  4. LABETOLOL [Concomitant]
  5. TERAZOSIN [Concomitant]
  6. LISINOPRIL [Concomitant]
  7. FOLTAX [Concomitant]
  8. FENOFIBRATE [Concomitant]
  9. NORVASC [Concomitant]

REACTIONS (1)
  - Pancreatitis [Recovered/Resolved]
